FAERS Safety Report 12389934 (Version 3)
Quarter: 2016Q2

REPORT INFORMATION
  Report Type: Spontaneous
  Country: US (occurrence: US)
  Receive Date: 20160520
  Receipt Date: 20160613
  Transmission Date: 20160815
  Serious: Yes (Death, Hospitalization, Other)
  Sender: FDA-Public Use
  Company Number: US-ABBVIE-16P-163-1631758-00

PATIENT
  Age: 76 Year
  Sex: Male
  Weight: 72 kg

DRUGS (9)
  1. GLIPIZIDE. [Concomitant]
     Active Substance: GLIPIZIDE
     Indication: PRODUCT USED FOR UNKNOWN INDICATION
  2. SYNTHROID [Concomitant]
     Active Substance: LEVOTHYROXINE SODIUM
     Indication: PRODUCT USED FOR UNKNOWN INDICATION
  3. ADVAIR HFA [Concomitant]
     Active Substance: FLUTICASONE PROPIONATE\SALMETEROL XINAFOATE
     Indication: PRODUCT USED FOR UNKNOWN INDICATION
  4. VENCLEXTA [Suspect]
     Active Substance: VENETOCLAX
     Route: 048
     Dates: start: 20160429, end: 201605
  5. VENCLEXTA [Suspect]
     Active Substance: VENETOCLAX
     Route: 048
     Dates: start: 201605, end: 201605
  6. VENCLEXTA [Suspect]
     Active Substance: VENETOCLAX
     Indication: CHRONIC LYMPHOCYTIC LEUKAEMIA
     Route: 048
     Dates: start: 20160422, end: 20160428
  7. ATENOLOL. [Concomitant]
     Active Substance: ATENOLOL
     Indication: PRODUCT USED FOR UNKNOWN INDICATION
  8. PROSCAR [Concomitant]
     Active Substance: FINASTERIDE
     Indication: PRODUCT USED FOR UNKNOWN INDICATION
  9. MVI [Concomitant]
     Active Substance: VITAMINS
     Indication: PRODUCT USED FOR UNKNOWN INDICATION

REACTIONS (19)
  - Lactic acidosis [Fatal]
  - Hypoxia [Unknown]
  - Pyrexia [Not Recovered/Not Resolved]
  - Candida test positive [Fatal]
  - Febrile neutropenia [Fatal]
  - Respiratory distress [Unknown]
  - Infection [Unknown]
  - Drug dose omission [Unknown]
  - Neutropenia [Fatal]
  - Blood lactic acid increased [Fatal]
  - Tachypnoea [Not Recovered/Not Resolved]
  - Metabolic acidosis [Unknown]
  - Pancytopenia [Fatal]
  - Bone marrow necrosis [Fatal]
  - Hypotension [Unknown]
  - Transfusion reaction [Unknown]
  - Pulmonary oedema [Unknown]
  - Ascites [Fatal]
  - Pericardial effusion [Fatal]

NARRATIVE: CASE EVENT DATE: 201605
